FAERS Safety Report 18278516 (Version 1)
Quarter: 2020Q3

REPORT INFORMATION
  Report Type: Report from Study
  Country: None (occurrence: US)
  Receive Date: 20200917
  Receipt Date: 20200917
  Transmission Date: 20201103
  Serious: Yes (Hospitalization)
  Sender: FDA-Public Use
  Company Number: US-ABBVIE-20K-163-3569382-00

PATIENT
  Age: 56 Year
  Sex: Male

DRUGS (1)
  1. IMBRUVICA [Suspect]
     Active Substance: IBRUTINIB
     Indication: CHRONIC LYMPHOCYTIC LEUKAEMIA
     Route: 048
     Dates: start: 20190514

REACTIONS (5)
  - Weight decreased [Unknown]
  - Peripheral swelling [Unknown]
  - Pruritus [Unknown]
  - Gout [Unknown]
  - Renal disorder [Unknown]

NARRATIVE: CASE EVENT DATE: 20200913
